FAERS Safety Report 8963947 (Version 1)
Quarter: 2012Q4

REPORT INFORMATION
  Report Type: 
  Country: US (occurrence: US)
  Receive Date: 20121214
  Receipt Date: 20121214
  Transmission Date: 20130627
  Serious: Yes (Other)
  Sender: FDA-Public Use
  Company Number: US-SANOFI-AVENTIS-2012SA090235

PATIENT
  Age: 66 Year
  Sex: Male

DRUGS (2)
  1. LANTUS [Suspect]
     Indication: TYPE I DIABETES MELLITUS
     Dosage: Dose:23 unit(s)
     Route: 058
     Dates: start: 1992
  2. HUMALOG [Concomitant]

REACTIONS (3)
  - Toe amputation [Recovering/Resolving]
  - Blood glucose decreased [Recovering/Resolving]
  - Confusional state [Recovering/Resolving]
